FAERS Safety Report 25815563 (Version 1)
Quarter: 2025Q3

REPORT INFORMATION
  Report Type: Spontaneous
  Country: EU (occurrence: EU)
  Receive Date: 20250918
  Receipt Date: 20250918
  Transmission Date: 20251020
  Serious: Yes (Hospitalization)
  Sender: CHEPLAPHARM
  Company Number: None

PATIENT
  Age: 25 Year
  Sex: Male

DRUGS (6)
  1. CLONAZEPAM [Suspect]
     Active Substance: CLONAZEPAM
     Indication: Product used for unknown indication
  2. PREGABALIN [Suspect]
     Active Substance: PREGABALIN
     Indication: Product used for unknown indication
  3. UNSPECIFIED INGREDIENT [Suspect]
     Active Substance: UNSPECIFIED INGREDIENT
     Indication: Toxicity to various agents
  4. TRAMADOL [Suspect]
     Active Substance: TRAMADOL
  5. OXAZEPAM [Suspect]
     Active Substance: OXAZEPAM
  6. ALPRAZOLAM [Suspect]
     Active Substance: ALPRAZOLAM

REACTIONS (5)
  - Miosis [Unknown]
  - Disorientation [Unknown]
  - Hypotension [Unknown]
  - Dysarthria [Unknown]
  - Gait disturbance [Unknown]
